FAERS Safety Report 5708643-X (Version None)
Quarter: 2008Q2

REPORT INFORMATION
  Report Type: 
  Country: None (occurrence: None)
  Receive Date: 20080414
  Receipt Date: 20080414
  Transmission Date: 20081010
  Serious: Yes (Death)
  Sender: FDA-Public Use
  Company Number: None

PATIENT
  Age: 50 Year
  Sex: Male
  Weight: 97.5234 kg

DRUGS (2)
  1. GLUCOVANCE [Suspect]
     Indication: DIABETES MELLITUS
     Dosage: 1 TABLET TWICE A DAY PO
     Route: 048
     Dates: start: 20060120, end: 20060421
  2. LISINOPRIL [Suspect]
     Indication: DIABETES MELLITUS
     Dates: start: 20060120, end: 20060421

REACTIONS (4)
  - LIVER DISORDER [None]
  - PANCREATITIS [None]
  - RENAL FAILURE [None]
  - UNEVALUABLE EVENT [None]
